FAERS Safety Report 10084526 (Version 3)
Quarter: 2014Q2

REPORT INFORMATION
  Report Type: Report from Study
  Country: CA (occurrence: CA)
  Receive Date: 20140417
  Receipt Date: 20140503
  Transmission Date: 20141212
  Serious: Yes (Other)
  Sender: FDA-Public Use
  Company Number: PHHY2013CA150570

PATIENT
  Age: 48 Year
  Sex: Male

DRUGS (5)
  1. GILENYA [Suspect]
     Indication: RELAPSING-REMITTING MULTIPLE SCLEROSIS
     Dosage: 0.5 MG, QD
     Route: 048
     Dates: start: 20130918, end: 20131211
  2. CELEXA [Concomitant]
     Dosage: 40 MG, QD
  3. CIALIS [Concomitant]
     Dosage: UNK UKN, PRN
  4. VITAMIN D [Concomitant]
     Dosage: 4000 IU, QD
  5. MARIHUANA [Concomitant]

REACTIONS (10)
  - Blood pressure increased [Not Recovered/Not Resolved]
  - Liver function test abnormal [Recovering/Resolving]
  - Alanine aminotransferase increased [Recovering/Resolving]
  - Heart rate increased [Unknown]
  - Dyspnoea [Unknown]
  - Headache [Unknown]
  - Multiple sclerosis relapse [Unknown]
  - Gait disturbance [Unknown]
  - Visual impairment [Unknown]
  - Weight decreased [Unknown]
